FAERS Safety Report 15453549 (Version 6)
Quarter: 2018Q4

REPORT INFORMATION
  Report Type: Report from Study
  Country: US (occurrence: US)
  Receive Date: 20181001
  Receipt Date: 20181130
  Transmission Date: 20190204
  Serious: Yes (Hospitalization)
  Sender: FDA-Public Use
  Company Number: US-ACTELION-A-NJ2018-179374

PATIENT
  Age: 61 Year
  Sex: Female

DRUGS (1)
  1. OPSUMIT [Suspect]
     Active Substance: MACITENTAN
     Indication: PULMONARY HYPERTENSION
     Dosage: 10 MG, QD
     Route: 048
     Dates: start: 20180320

REACTIONS (6)
  - Dyspnoea [Unknown]
  - Pneumonia viral [Unknown]
  - Hospitalisation [Unknown]
  - Bedridden [Unknown]
  - Gait inability [Unknown]
  - Fluid retention [Unknown]
